FAERS Safety Report 9005935 (Version 2)
Quarter: 2013Q1

REPORT INFORMATION
  Report Type: Spontaneous
  Country: US (occurrence: US)
  Receive Date: 20130109
  Receipt Date: 20130125
  Transmission Date: 20140127
  Serious: No
  Sender: FDA-Public Use
  Company Number: US-PFIZER INC-2013009598

PATIENT
  Age: 7 Year
  Sex: Female

DRUGS (1)
  1. ADVIL [Suspect]
     Indication: PYREXIA
     Dosage: 2 TEASPOONS IN 6-8HRS
     Route: 048
     Dates: start: 20130108, end: 20130108

REACTIONS (1)
  - Inappropriate affect [Recovered/Resolved]
